FAERS Safety Report 5870706-6 (Version None)
Quarter: 2008Q3

REPORT INFORMATION
  Report Type: 
  Country: None (occurrence: None)
  Receive Date: 20080904
  Receipt Date: 20080829
  Transmission Date: 20090109
  Serious: Yes (Hospitalization, Other)
  Sender: FDA-Public Use
  Company Number: PHHY2008BR13877

PATIENT
  Age: 54 Year
  Sex: Female
  Weight: 60 kg

DRUGS (3)
  1. FORASEQ [Suspect]
     Indication: ASTHMA
     Dosage: 12/400 MCG, Q12H
     Dates: start: 20050101, end: 20080822
  2. COMBIVENT [Concomitant]
     Indication: ASTHMA
     Dosage: 6 INHALATION PER DAY
     Dates: start: 20050101
  3. COMBIVENT [Concomitant]
     Indication: EMPHYSEMA

REACTIONS (5)
  - BACK PAIN [None]
  - ECHOGRAPHY ABNORMAL [None]
  - ENDOTRACHEAL INTUBATION [None]
  - HEPATIC NEOPLASM [None]
  - LAPAROSCOPY [None]
